FAERS Safety Report 5885204-3 (Version None)
Quarter: 2008Q3

REPORT INFORMATION
  Report Type: 
  Country: None (occurrence: None)
  Receive Date: 20080916
  Receipt Date: 20080904
  Transmission Date: 20090109
  Serious: Yes (Other)
  Sender: FDA-Public Use
  Company Number: US-PFIZER INC-2005070485

PATIENT
  Sex: Male
  Weight: 86.2 kg

DRUGS (13)
  1. TIKOSYN [Suspect]
     Indication: ATRIAL FIBRILLATION
     Dates: start: 20040101, end: 20080101
  2. VITAMIN TAB [Concomitant]
     Dosage: FREQ:DAILY
  3. MAGNESIUM SULFATE [Concomitant]
  4. METFORMIN [Concomitant]
  5. ATENOLOL [Concomitant]
  6. LASIX [Concomitant]
  7. CUMADIN [Concomitant]
  8. POTASSIUM CHLORIDE [Concomitant]
  9. PRAVACHOL [Concomitant]
  10. COZAAR [Concomitant]
  11. GLIPIZIDE [Concomitant]
  12. LISINOPRIL [Concomitant]
  13. TOPROL-XL [Concomitant]

REACTIONS (9)
  - ABDOMINAL PAIN [None]
  - CHEST PAIN [None]
  - DRUG INEFFECTIVE [None]
  - ELECTROCARDIOGRAM QT PROLONGED [None]
  - FEELING ABNORMAL [None]
  - NEOPLASM MALIGNANT [None]
  - NEPHROLITHIASIS [None]
  - TOOTH DISORDER [None]
  - VENTRICULAR EXTRASYSTOLES [None]
